FAERS Safety Report 22663297 (Version 3)
Quarter: 2023Q4

REPORT INFORMATION
  Report Type: Report from Study
  Country: CA (occurrence: CA)
  Receive Date: 20230703
  Receipt Date: 20231114
  Transmission Date: 20240110
  Serious: Yes (Hospitalization, Other)
  Sender: FDA-Public Use
  Company Number: CA-ABBVIE-5311402

PATIENT
  Sex: Female

DRUGS (2)
  1. SKYRIZI [Suspect]
     Active Substance: RISANKIZUMAB-RZAA
     Indication: Psoriasis
     Route: 058
     Dates: start: 20220727
  2. SKYRIZI [Suspect]
     Active Substance: RISANKIZUMAB-RZAA
     Indication: Psoriasis
     Route: 058
     Dates: start: 20230628

REACTIONS (6)
  - Renal failure [Unknown]
  - Pruritus [Unknown]
  - Renal disorder [Recovered/Resolved]
  - Blood potassium decreased [Recovered/Resolved]
  - Contusion [Unknown]
  - Skin lesion [Unknown]

NARRATIVE: CASE EVENT DATE: 20230101
